FAERS Safety Report 4403926-8 (Version None)
Quarter: 2004Q3

REPORT INFORMATION
  Report Type: 
  Country: None (occurrence: None)
  Receive Date: 20040719
  Receipt Date: 20031117
  Transmission Date: 20050211
  Serious: Yes (Life-Threatening)
  Sender: FDA-Public Use
  Company Number: JP-SHR-03-016454

PATIENT
  Age: 66 Year
  Sex: Male

DRUGS (12)
  1. PROSCOPE (IOPROMIDE) N/A [Suspect]
     Indication: ARTERIOGRAM
     Dosage: INTRA-ARTERIAL
     Route: 013
     Dates: start: 20030904, end: 20030904
  2. HEPARIN ^NOVO^ (HEPARIN SODIUM) [Suspect]
     Indication: ANTICOAGULANT THERAPY
     Dosage: INJECTION
     Dates: start: 20030904, end: 20030904
  3. FAMORUBICIN (EPIRUBICIN) [Suspect]
     Dosage: 20  INTRA-ARTERIAL
     Route: 013
     Dates: start: 20030904, end: 20030904
  4. ALPROSTADIL [Suspect]
     Dosage: 5 OTHER, INTRA-ARTERIAL
     Route: 013
     Dates: start: 20030904, end: 20030904
  5. HERBESSER ^TANABE^ (DILTIAZEM HYDROCHLORIDE) [Suspect]
     Dosage: 10 MG/D, INTRA-ARTERIAL
     Route: 013
     Dates: start: 20030904, end: 20030904
  6. DEPAS [Concomitant]
  7. EPIRUBICIN HYDROCHLORIDE (EPIRUBICIN HYDROCHLORIDE) [Concomitant]
  8. AMLODIPINE BESYLATE [Concomitant]
  9. DOXAZOSIN MESYLATE [Concomitant]
  10. ZYLORIC ^FAES^ [Concomitant]
  11. EPL [Concomitant]
  12. URSO [Concomitant]

REACTIONS (2)
  - PLATELET COUNT DECREASED [None]
  - WHITE BLOOD CELL COUNT DECREASED [None]
